FAERS Safety Report 5100244-X (Version None)
Quarter: 2006Q3

REPORT INFORMATION
  Report Type: 
  Country: None (occurrence: None)
  Receive Date: 20060908
  Receipt Date: 20060810
  Transmission Date: 20061208
  Serious: Yes (Hospitalization)
  Sender: FDA-Public Use
  Company Number: BE-MERCK-0608BEL00015

PATIENT
  Age: 54 Year
  Sex: Female
  Weight: 70 kg

DRUGS (10)
  1. FOSAMAX [Suspect]
     Indication: SPINAL FRACTURE
     Route: 048
     Dates: start: 20050601, end: 20060801
  2. FOSAMAX [Suspect]
     Indication: OSTEOPOROSIS
     Route: 048
     Dates: start: 20050601, end: 20060801
  3. BUDESONIDE [Concomitant]
     Indication: ASTHMA
     Route: 055
  4. DESLORATADINE [Concomitant]
     Indication: HYPERSENSITIVITY
     Route: 048
  5. TRAZODONE HYDROCHLORIDE [Concomitant]
     Indication: DEPRESSION
     Route: 048
  6. VENLAFAXINE HYDROCHLORIDE [Concomitant]
     Indication: DEPRESSION
     Route: 048
     Dates: start: 19860101
  7. DYDROGESTERONE AND ESTRADIOL [Concomitant]
     Route: 048
     Dates: start: 19990101
  8. TELMISARTAN [Concomitant]
     Indication: PALPITATIONS
     Route: 048
     Dates: start: 19860101
  9. FENOFIBRATE [Concomitant]
     Indication: HYPERTRIGLYCERIDAEMIA
     Route: 048
     Dates: start: 19860101
  10. BUDESONIDE AND FORMOTEROL FUMARATE [Concomitant]
     Indication: ASTHMA
     Route: 055

REACTIONS (4)
  - AUTOIMMUNE THYROIDITIS [None]
  - HYPERPARATHYROIDISM [None]
  - PERIARTHRITIS [None]
  - RENAL FAILURE CHRONIC [None]
